FAERS Safety Report 7781951-7 (Version None)
Quarter: 2011Q3

REPORT INFORMATION
  Report Type: 
  Country: None (occurrence: None)
  Receive Date: 20110927
  Receipt Date: 20110920
  Transmission Date: 20111222
  Serious: Yes (Other)
  Sender: FDA-Public Use
  Company Number: US-ABBOTT-11P-163-0856377-00

PATIENT
  Age: 39 Year
  Sex: Male
  Weight: 93 kg

DRUGS (7)
  1. VITAMIN TAB [Concomitant]
     Indication: PRODUCT USED FOR UNKNOWN INDICATION
  2. PRISTIQ [Suspect]
     Indication: BIPOLAR DISORDER
     Dosage: 50MG DAILY: HALF OF A 100MG TABLET
     Route: 048
     Dates: start: 20100101
  3. ABILIFY [Suspect]
     Indication: BIPOLAR DISORDER
  4. FISH OIL [Concomitant]
     Indication: PRODUCT USED FOR UNKNOWN INDICATION
  5. PRISTIQ [Suspect]
     Indication: DEPRESSION
     Dosage: A QUARTER OF A 100MG TABLET DAILY
  6. NIASPAN [Suspect]
     Indication: BLOOD TRIGLYCERIDES INCREASED
  7. REBIF [Suspect]
     Indication: PRODUCT USED FOR UNKNOWN INDICATION

REACTIONS (4)
  - ANXIETY [None]
  - BLOOD TRIGLYCERIDES INCREASED [None]
  - BLOOD GLUCOSE ABNORMAL [None]
  - ABDOMINAL DISCOMFORT [None]
